FAERS Safety Report 5030929-5 (Version None)
Quarter: 2006Q2

REPORT INFORMATION
  Report Type: 
  Country: None (occurrence: None)
  Receive Date: 20060619
  Receipt Date: 20060606
  Transmission Date: 20061013
  Serious: Yes (Hospitalization)
  Sender: FDA-Public Use
  Company Number: 2004-00960

PATIENT
  Age: 66 Year
  Sex: Male
  Weight: 78.1 kg

DRUGS (26)
  1. VELCADE [Suspect]
     Indication: MULTIPLE MYELOMA
     Dosage: 2.60 MG, INTRAVENOUS
     Route: 042
     Dates: start: 20041123, end: 20041217
  2. ATORVASTATIN CALCIUM [Concomitant]
  3. VITAMIN E [Concomitant]
  4. ZOPICLONE (ZOPICLONE) [Concomitant]
  5. ACETAMINOPHEN [Concomitant]
  6. MEPERIDINE HCL [Concomitant]
  7. IMIPENEM (IMIPENEM) [Concomitant]
  8. CEFOTAXIME SODIUM [Concomitant]
  9. COLACE (DOCUSATE SODIUM) [Concomitant]
  10. SENOKOT [Concomitant]
  11. IMODIUM [Concomitant]
  12. RHINARIS (PROPYLENE GLYCOL, MACROGOL) [Concomitant]
  13. ACETAMINOPHEN [Concomitant]
  14. CEFTIN [Concomitant]
  15. TYLENOL W/ CODEINE NO. 3 [Concomitant]
  16. GRAVOL TAB [Concomitant]
  17. PROCHLORPERAZINE [Concomitant]
  18. ATIVAN [Concomitant]
  19. FLAGYL [Concomitant]
  20. CEFTRIAXONE [Concomitant]
  21. RANITIDINE [Concomitant]
  22. DEMEROLL (PETHIDINE HYDROCHLORIDE) [Concomitant]
  23. HYDROCORTISONE [Concomitant]
  24. TYLENOL NO. 2 (CODEINE PHOSPHATE, CAFFEINE, PARACETAMOL) [Concomitant]
  25. WHOLE BLOOD [Concomitant]
  26. PLATELETS [Concomitant]

REACTIONS (36)
  - AGITATION [None]
  - ASPARTATE AMINOTRANSFERASE INCREASED [None]
  - BLOOD ALBUMIN DECREASED [None]
  - BLOOD ALKALINE PHOSPHATASE INCREASED [None]
  - BLOOD CALCIUM DECREASED [None]
  - BLOOD CREATININE INCREASED [None]
  - BLOOD LACTATE DEHYDROGENASE INCREASED [None]
  - BLOOD POTASSIUM INCREASED [None]
  - BLOOD PRESSURE SYSTOLIC INCREASED [None]
  - BLOOD SODIUM DECREASED [None]
  - CARDIOMEGALY [None]
  - COAGULOPATHY [None]
  - CONFUSIONAL STATE [None]
  - CREPITATIONS [None]
  - DEPRESSED LEVEL OF CONSCIOUSNESS [None]
  - DISEASE PROGRESSION [None]
  - DISEASE RECURRENCE [None]
  - GAMMA-GLUTAMYLTRANSFERASE INCREASED [None]
  - GENERAL PHYSICAL HEALTH DETERIORATION [None]
  - GRANULOCYTE COUNT DECREASED [None]
  - HAEMATEMESIS [None]
  - HEADACHE [None]
  - HEART RATE INCREASED [None]
  - INFECTION [None]
  - INTERNATIONAL NORMALISED RATIO INCREASED [None]
  - INTERSTITIAL LUNG DISEASE [None]
  - MALLORY-WEISS SYNDROME [None]
  - MULTIPLE MYELOMA [None]
  - PAIN [None]
  - PEPTIC ULCER [None]
  - PLATELET COUNT DECREASED [None]
  - PNEUMONIA ASPIRATION [None]
  - PYREXIA [None]
  - RESPIRATORY RATE INCREASED [None]
  - RESUSCITATION [None]
  - UPPER GASTROINTESTINAL HAEMORRHAGE [None]
